FAERS Safety Report 4381549-7 (Version None)
Quarter: 2004Q2

REPORT INFORMATION
  Report Type: 
  Country: None (occurrence: None)
  Receive Date: 20040616
  Receipt Date: 20040605
  Transmission Date: 20050107
  Serious: Yes (Other)
  Sender: FDA-Public Use
  Company Number: 2004035668

PATIENT
  Sex: Male
  Weight: 89.8122 kg

DRUGS (6)
  1. LIPITOR [Suspect]
     Indication: BLOOD CHOLESTEROL INCREASED
     Dosage: 10 MG (1 IN 1 D), ORAL
     Route: 048
     Dates: start: 19980101
  2. RAMIPRIL [Concomitant]
  3. FOLIC ACID [Concomitant]
  4. ISOSORBIDE MONONITRATE [Concomitant]
  5. METOPROLOL SUCCINATE [Concomitant]
  6. ASPIRIN [Concomitant]

REACTIONS (13)
  - AMNESIA [None]
  - ARTHRALGIA [None]
  - BLOOD HOMOCYSTEINE ABNORMAL [None]
  - BONE PAIN [None]
  - CONSTIPATION [None]
  - FATIGUE [None]
  - FEELING ABNORMAL [None]
  - HIGH DENSITY LIPOPROTEIN DECREASED [None]
  - INFLUENZA [None]
  - LOW DENSITY LIPOPROTEIN DECREASED [None]
  - MUSCLE SPASMS [None]
  - MYALGIA [None]
  - PROSTATIC SPECIFIC ANTIGEN INCREASED [None]
